FAERS Safety Report 25688581 (Version 1)
Quarter: 2025Q3

REPORT INFORMATION
  Report Type: Spontaneous
  Country: US (occurrence: US)
  Receive Date: 20250818
  Receipt Date: 20250818
  Transmission Date: 20251021
  Serious: No
  Sender: GILEAD
  Company Number: US-GILEAD-2025-0724350

PATIENT
  Age: 40 Year
  Sex: Female

DRUGS (1)
  1. VEMLIDY [Suspect]
     Active Substance: TENOFOVIR ALAFENAMIDE FUMARATE
     Indication: Hepatitis B
     Route: 065

REACTIONS (2)
  - Circumstance or information capable of leading to medication error [Not Recovered/Not Resolved]
  - Product storage error [Not Recovered/Not Resolved]
